FAERS Safety Report 7933730-5 (Version None)
Quarter: 2011Q4

REPORT INFORMATION
  Report Type: 
  Country: None (occurrence: None)
  Receive Date: 20111122
  Receipt Date: 20111116
  Transmission Date: 20120403
  Serious: No
  Sender: FDA-Public Use
  Company Number: US-PFIZER INC-2011281940

PATIENT
  Sex: Female
  Weight: 83.9 kg

DRUGS (2)
  1. ZYVOX [Suspect]
     Indication: INTESTINAL OPERATION
     Dosage: 600 MG, UNK
     Dates: start: 20111115
  2. PREDNISONE [Concomitant]
     Indication: CROHN'S DISEASE
     Dosage: 20 MG, UNK
     Dates: start: 20110101

REACTIONS (3)
  - VOMITING [None]
  - NAUSEA [None]
  - ABDOMINAL PAIN UPPER [None]
